FAERS Safety Report 18537632 (Version 3)
Quarter: 2020Q4

REPORT INFORMATION
  Report Type: Spontaneous
  Country: CN (occurrence: CN)
  Receive Date: 20201124
  Receipt Date: 20201214
  Transmission Date: 20210114
  Serious: Yes (Hospitalization)
  Sender: FDA-Public Use
  Company Number: CN-BIOGEN-2020BI00948963

PATIENT
  Age: 7 Month
  Sex: Male
  Weight: 8.5 kg

DRUGS (2)
  1. SPINRAZA [Suspect]
     Active Substance: NUSINERSEN
     Indication: SPINAL MUSCULAR ATROPHY
     Dosage: DOSE: 5ML:12MG
     Route: 065
     Dates: start: 20201030
  2. SPINRAZA [Suspect]
     Active Substance: NUSINERSEN
     Dosage: DOSE: 5ML:12MG
     Route: 065
     Dates: start: 20201113

REACTIONS (3)
  - Pneumonia [Not Recovered/Not Resolved]
  - Viral infection [Unknown]
  - Pyrexia [Not Recovered/Not Resolved]

NARRATIVE: CASE EVENT DATE: 20201116
